FAERS Safety Report 21525476 (Version 1)
Quarter: 2022Q4

REPORT INFORMATION
  Report Type: Spontaneous
  Country: US (occurrence: None)
  Receive Date: 20221028
  Receipt Date: 20221028
  Transmission Date: 20230112
  Serious: Yes (Hospitalization)
  Sender: FDA-Public Use
  Company Number: None

PATIENT
  Age: 82 Year
  Sex: Male
  Weight: 95.7 kg

DRUGS (1)
  1. LENALIDOMIDE [Suspect]
     Active Substance: LENALIDOMIDE

REACTIONS (5)
  - Urine leukocyte esterase positive [None]
  - Fungal test positive [None]
  - Asthenia [None]
  - Fatigue [None]
  - Aerococcus urinae infection [None]

NARRATIVE: CASE EVENT DATE: 20221008
